FAERS Safety Report 23591861 (Version 3)
Quarter: 2024Q1

REPORT INFORMATION
  Report Type: Spontaneous
  Country: BR (occurrence: BR)
  Receive Date: 20240304
  Receipt Date: 20240306
  Transmission Date: 20240409
  Serious: No
  Sender: FDA-Public Use
  Company Number: BR-PFIZER INC-202400037035

PATIENT
  Sex: Male

DRUGS (1)
  1. SOMATROGON [Suspect]
     Active Substance: SOMATROGON
     Dosage: UNK, WEEKLY

REACTIONS (6)
  - Device mechanical issue [Unknown]
  - Device defective [Unknown]
  - Drug dose omission by device [Unknown]
  - Device leakage [Unknown]
  - Poor quality device used [Unknown]
  - Incorrect dose administered by device [Unknown]
